FAERS Safety Report 11525005 (Version 1)
Quarter: 2015Q3

REPORT INFORMATION
  Report Type: Spontaneous
  Country: ES (occurrence: ES)
  Receive Date: 20150918
  Receipt Date: 20150918
  Transmission Date: 20151125
  Serious: Yes (Hospitalization)
  Sender: FDA-Public Use
  Company Number: ES-GE HEALTHCARE MEDICAL DIAGNOSTICS-VISP-E2B_00000154

PATIENT
  Age: 67 Year
  Sex: Female

DRUGS (7)
  1. MASTICAL D  500 MG/ 800 UI COMPRIMIDOS MASTICABLES, 30 COMPRIMIDOS [Concomitant]
     Indication: HYPERTENSION
     Route: 048
  2. AMLODIPINE [Concomitant]
     Active Substance: AMLODIPINE BESYLATE
     Indication: HYPOTHYROIDISM
     Route: 048
  3. ORFIDAL 1 MG COMPRIMIDOS, 25 COMPRIMIDOS [Concomitant]
     Route: 048
  4. VALSARTAN. [Concomitant]
     Active Substance: VALSARTAN
     Route: 048
  5. VISIPAQUE [Suspect]
     Active Substance: IODIXANOL
     Indication: HAEMORRHAGE
     Dosage: DOSE NOT REPORTED
     Route: 013
     Dates: start: 20150720, end: 20150720
  6. VISIPAQUE [Suspect]
     Active Substance: IODIXANOL
     Indication: DIAGNOSTIC PROCEDURE
  7. EUTIROX  75 MICROGRAMOS COMPRIMIDOS , 100 COMPRIMIDOS [Concomitant]
     Indication: INSOMNIA
     Route: 048

REACTIONS (5)
  - Sensory loss [Recovered/Resolved]
  - Aphasia [Recovered/Resolved]
  - Neurotoxicity [Recovered/Resolved]
  - Hemiparesis [Recovered/Resolved]
  - Partial seizures [Recovered/Resolved]

NARRATIVE: CASE EVENT DATE: 20150720
